FAERS Safety Report 15306978 (Version 1)
Quarter: 2018Q3

REPORT INFORMATION
  Report Type: Report from Study
  Country: MX (occurrence: MX)
  Receive Date: 20180822
  Receipt Date: 20180822
  Transmission Date: 20181010
  Serious: Yes (Death)
  Sender: FDA-Public Use
  Company Number: PHHY2018MX076773

PATIENT
  Age: 62 Year
  Sex: Female

DRUGS (2)
  1. EXFORGE [Suspect]
     Active Substance: AMLODIPINE BESYLATE\VALSARTAN
     Indication: HYPERTENSION
     Dosage: 0.5 DF, BID (1/2 TABLET IN MORNING AND 1/2 TABLET IN AFTERNOON) SINCE 5 MONTHS APPROXIMATELY
     Route: 048
  2. EXFORGE [Suspect]
     Active Substance: AMLODIPINE BESYLATE\VALSARTAN
     Dosage: 1.5 DF, QD (5 MG AMLODIPINE, 160 MG VALSARTAN)
     Route: 048

REACTIONS (6)
  - Metabolic acidosis [Fatal]
  - Inappropriate schedule of drug administration [Unknown]
  - Chronic kidney disease [Fatal]
  - Type 2 diabetes mellitus [Fatal]
  - Wrong technique in product usage process [Unknown]
  - Drug prescribing error [Unknown]

NARRATIVE: CASE EVENT DATE: 20180619
